FAERS Safety Report 4530498-X (Version None)
Quarter: 2004Q4

REPORT INFORMATION
  Report Type: 
  Country: None (occurrence: None)
  Receive Date: 20041206
  Receipt Date: 20041006
  Transmission Date: 20050328
  Serious: No
  Sender: FDA-Public Use
  Company Number: USA040977687

PATIENT
  Age: 40 Year
  Sex: Female
  Weight: 57 kg

DRUGS (2)
  1. CYMBALTA [Suspect]
     Indication: ANXIETY
     Dosage: 60 MG IN THE EVENING
     Dates: start: 20040904
  2. ZANTAC [Concomitant]

REACTIONS (8)
  - ANORGASMIA [None]
  - CONSTIPATION [None]
  - DECREASED APPETITE [None]
  - FATIGUE [None]
  - FEELING OF RELAXATION [None]
  - INSOMNIA [None]
  - LETHARGY [None]
  - SOMNOLENCE [None]
